FAERS Safety Report 9229540 (Version 1)
Quarter: 2013Q2

REPORT INFORMATION
  Report Type: Spontaneous
  Country: BR (occurrence: BR)
  Receive Date: 20130413
  Receipt Date: 20130413
  Transmission Date: 20140414
  Serious: Yes (Other)
  Sender: FDA-Public Use
  Company Number: BR-AMGEN-BRASP2013025556

PATIENT
  Age: 61 Year
  Sex: Female

DRUGS (4)
  1. ENBREL [Suspect]
     Indication: RHEUMATOID ARTHRITIS
     Dosage: 50 MG, WEEKLY (ON TUESDAYS)
     Dates: start: 200911
  2. METHOTREXATE SODIUM [Suspect]
     Dosage: 0.8 OF INSULIN SYRINGE (UNSPECIFIED DOSE), 1X/WEEK (ON FRIDAYS)
     Dates: start: 2009
  3. PREDNISONE [Suspect]
     Dosage: UNK
  4. ARAVA [Concomitant]
     Dosage: UNK
     Dates: start: 2009

REACTIONS (9)
  - Wound haemorrhage [Unknown]
  - Rash [Unknown]
  - Wound [Unknown]
  - Liver disorder [Recovering/Resolving]
  - Weight decreased [Unknown]
  - Arthralgia [Unknown]
  - Pain in extremity [Unknown]
  - Injection site haematoma [Unknown]
  - Injection site reaction [Unknown]
